FAERS Safety Report 5287608-9 (Version None)
Quarter: 2007Q1

REPORT INFORMATION
  Report Type: 
  Country: None (occurrence: None)
  Receive Date: 20070124
  Receipt Date: 20060322
  Transmission Date: 20070707
  Serious: Yes (Hospitalization, Other)
  Sender: FDA-Public Use
  Company Number: WAES 0603USA03551

PATIENT
  Age: 89 Year
  Sex: Female

DRUGS (2)
  1. INVANZ [Suspect]
     Indication: ANTI-INFECTIVE THERAPY
     Dosage: 1 GM/DAILY/IV
     Route: 042
     Dates: start: 20060222, end: 20060305
  2. INVANZ [Suspect]
     Indication: DIVERTICULITIS
     Dosage: 1 GM/DAILY/IV
     Route: 042
     Dates: start: 20060222, end: 20060305

REACTIONS (1)
  - CONVULSION [None]
